FAERS Safety Report 8941745 (Version 3)
Quarter: 2013Q1

REPORT INFORMATION
  Report Type: Spontaneous
  Country: GB (occurrence: GB)
  Receive Date: 20121203
  Receipt Date: 20130118
  Transmission Date: 20140127
  Serious: Yes (Other)
  Sender: FDA-Public Use
  Company Number: PHFR2012GB006186

PATIENT
  Age: 6 Year
  Sex: Female
  Weight: 19 kg

DRUGS (2)
  1. VOTUBIA [Suspect]
     Indication: ASTROCYTOMA
     Dosage: 5 MG/DAILY
     Dates: start: 20120105, end: 20120705
  2. VOTUBIA [Suspect]
     Dosage: 5 MG/DAY
     Route: 048
     Dates: start: 20120814, end: 20121125

REACTIONS (3)
  - Hydrocephalus [Recovered/Resolved]
  - Malignant neoplasm progression [Recovering/Resolving]
  - Convulsion [Unknown]
